FAERS Safety Report 6596446-6 (Version None)
Quarter: 2010Q1

REPORT INFORMATION
  Report Type: 
  Country: None (occurrence: None)
  Receive Date: 20100223
  Receipt Date: 20100129
  Transmission Date: 20100710
  Serious: No
  Sender: FDA-Public Use
  Company Number: JP-ROCHE-686637

PATIENT
  Age: 26 Year
  Sex: Female

DRUGS (1)
  1. TAMIFLU [Suspect]
     Indication: INFLUENZA
     Dosage: DRUG: TAMIFLU CAPSULE.  FORM: ORAL FORMATION (NOT OTHERWISE SPECIFIED)
     Route: 048
     Dates: start: 20091106, end: 20091110

REACTIONS (1)
  - DRUG EXPOSURE DURING PREGNANCY [None]
